FAERS Safety Report 6265847-8 (Version None)
Quarter: 2009Q3

REPORT INFORMATION
  Report Type: 
  Country: None (occurrence: None)
  Receive Date: 20090713
  Receipt Date: 20090706
  Transmission Date: 20100115
  Serious: Yes (Hospitalization)
  Sender: FDA-Public Use
  Company Number: B0582992A

PATIENT
  Sex: Female

DRUGS (4)
  1. SERETIDE [Suspect]
     Indication: ASTHMA
     Dosage: 250MCG TWICE PER DAY
     Route: 055
     Dates: start: 20080704
  2. ONON [Concomitant]
     Indication: ASTHMA
     Route: 048
     Dates: start: 20080704
  3. LENDORMIN [Concomitant]
     Route: 048
     Dates: start: 20070326
  4. UNKNOWN DRUG [Concomitant]
     Route: 048
     Dates: start: 20070908

REACTIONS (1)
  - ASTHMA [None]
